FAERS Safety Report 7796952-2 (Version None)
Quarter: 2011Q4

REPORT INFORMATION
  Report Type: 
  Country: None (occurrence: None)
  Receive Date: 20111005
  Receipt Date: 20110926
  Transmission Date: 20120403
  Serious: Yes (Hospitalization, Other)
  Sender: FDA-Public Use
  Company Number: GB-RANBAXY-2011R1-46815

PATIENT
  Age: 44 Year
  Sex: Male

DRUGS (3)
  1. BISOPROLOL [Suspect]
     Indication: PRODUCT USED FOR UNKNOWN INDICATION
     Dosage: UNK
     Route: 065
  2. OLANZAPINE [Suspect]
     Indication: PRODUCT USED FOR UNKNOWN INDICATION
     Dosage: UNK
     Route: 065
  3. ACETAMINOPHEN [Suspect]
     Indication: PRODUCT USED FOR UNKNOWN INDICATION
     Dosage: UNK
     Route: 065

REACTIONS (25)
  - HYPOTHERMIA [None]
  - MULTIPLE DRUG OVERDOSE INTENTIONAL [None]
  - WEIGHT DECREASED [None]
  - DEPRESSED MOOD [None]
  - HYPOPHOSPHATAEMIA [None]
  - PULMONARY CAVITATION [None]
  - HYPOGLYCAEMIA [None]
  - HYPOKALAEMIA [None]
  - COMA [None]
  - TOXICITY TO VARIOUS AGENTS [None]
  - LIVER FUNCTION TEST ABNORMAL [None]
  - SEPSIS [None]
  - PNEUMONIA [None]
  - CACHEXIA [None]
  - FEEDING DISORDER [None]
  - HYPOTENSION [None]
  - FALL [None]
  - MALNUTRITION [None]
  - ASPERGILLOMA [None]
  - BRADYCARDIA [None]
  - INTENTIONAL OVERDOSE [None]
  - TRANSAMINASES INCREASED [None]
  - COMA SCALE ABNORMAL [None]
  - ASTHENIA [None]
  - HEPATIC FUNCTION ABNORMAL [None]
